FAERS Safety Report 5136813-0 (Version None)
Quarter: 2006Q4

REPORT INFORMATION
  Report Type: 
  Country: None (occurrence: None)
  Receive Date: 20061018
  Receipt Date: 20061005
  Transmission Date: 20070319
  Serious: Yes (Life-Threatening, Hospitalization)
  Sender: FDA-Public Use
  Company Number: THYM-11107

PATIENT
  Age: 48 Year
  Sex: Male

DRUGS (3)
  1. THYMOGLOBULIN [Suspect]
     Indication: LIVER TRANSPLANT
     Dosage: 1.5 MG/KG QOD
     Dates: start: 20050818, end: 20050822
  2. TACROLIMUS [Concomitant]
  3. MYCOPHENOLATE MOFETIL [Concomitant]

REACTIONS (4)
  - CYTOLYTIC HEPATITIS [None]
  - DEPRESSED LEVEL OF CONSCIOUSNESS [None]
  - RENAL FAILURE [None]
  - SHOCK [None]
